FAERS Safety Report 9649362 (Version 3)
Quarter: 2014Q1

REPORT INFORMATION
  Report Type: Report from Study
  Country: US (occurrence: US)
  Receive Date: 20131028
  Receipt Date: 20140103
  Transmission Date: 20141002
  Serious: Yes (Other)
  Sender: FDA-Public Use
  Company Number: US-SA-2013SA106593

PATIENT
  Age: 26 Month
  Sex: Female
  Weight: 10.7 kg

DRUGS (6)
  1. SARGRAMOSTIM [Suspect]
     Indication: NEUROBLASTOMA
     Route: 058
     Dates: start: 20130906, end: 20130916
  2. INVESTIGATIONAL DRUG [Suspect]
     Indication: NEUROBLASTOMA
     Route: 042
     Dates: start: 20130909, end: 20130912
  3. INTERLEUKIN-2 [Suspect]
     Indication: NEUROBLASTOMA
     Dosage: DOSE IS 2.1 IUM
     Route: 042
     Dates: start: 20130812, end: 20130815
  4. ISOTRETINOIN [Suspect]
     Indication: NEUROBLASTOMA
     Route: 048
     Dates: start: 20130819, end: 20130901
  5. BACTRIM [Concomitant]
     Indication: PROPHYLAXIS
     Route: 065
     Dates: start: 20130628
  6. BACTRIM [Concomitant]
     Indication: PROPHYLAXIS
     Route: 065
     Dates: start: 20130923

REACTIONS (1)
  - Serum sickness [Recovered/Resolved]
